FAERS Safety Report 23679051 (Version 1)
Quarter: 2024Q1

REPORT INFORMATION
  Report Type: Report from Study
  Country: US (occurrence: US)
  Receive Date: 20240327
  Receipt Date: 20240327
  Transmission Date: 20240410
  Serious: Yes (Hospitalization, Other)
  Sender: FDA-Public Use
  Company Number: US-UCBSA-2023057225

PATIENT
  Sex: Male
  Weight: 20 kg

DRUGS (2)
  1. FINTEPLA [Suspect]
     Active Substance: FENFLURAMINE
     Indication: Lennox-Gastaut syndrome
     Dosage: 3 MILLILITER, 2X/DAY (BID) VIA G TUBE
     Dates: start: 20230511
  2. FINTEPLA [Suspect]
     Active Substance: FENFLURAMINE
     Dosage: 3 MILLILITER, 2X/DAY (BID)

REACTIONS (3)
  - Pulmonary oedema [Not Recovered/Not Resolved]
  - Hospitalisation [Not Recovered/Not Resolved]
  - Left-to-right cardiac shunt [Unknown]

NARRATIVE: CASE EVENT DATE: 20230101
